FAERS Safety Report 8906344 (Version 2)
Quarter: 2012Q4

REPORT INFORMATION
  Report Type: Spontaneous
  Country: US (occurrence: None)
  Receive Date: 20121107
  Receipt Date: 20121113
  Transmission Date: 20130627
  Serious: Yes (Death, Other)
  Sender: FDA-Public Use
  Company Number: 2012-6856

PATIENT
  Age: 85 Year
  Sex: Female

DRUGS (3)
  1. DYSPORT [Suspect]
     Indication: HYPERSALIVATION
     Dosage: Not reported (1 in 1)
     Dates: start: 20120913, end: 20120913
  2. NEOMERCAZOLE (CARBIMAZOLE) [Concomitant]
  3. NEUROLEPTICS NOS (ANTISEPTICPSYCHOTICS) [Concomitant]

REACTIONS (10)
  - Dysphagia [None]
  - Gastrointestinal haemorrhage [None]
  - Shock [None]
  - Hiatus hernia [None]
  - Gastric ulcer [None]
  - Vocal cord paralysis [None]
  - Abdominal pain [None]
  - Blood pressure systolic increased [None]
  - Sudden death [None]
  - Shock haemorrhagic [None]
